APPROVED DRUG PRODUCT: ISTALOL
Active Ingredient: TIMOLOL MALEATE
Strength: EQ 0.5% BASE
Dosage Form/Route: SOLUTION/DROPS;OPHTHALMIC
Application: N021516 | Product #001 | TE Code: AT2
Applicant: BAUSCH AND LOMB INC
Approved: Jun 4, 2004 | RLD: Yes | RS: Yes | Type: RX